FAERS Safety Report 10760912 (Version 3)
Quarter: 2015Q2

REPORT INFORMATION
  Report Type: Spontaneous
  Country: US (occurrence: None)
  Receive Date: 20150202
  Receipt Date: 20150410
  Transmission Date: 20150821
  Serious: Yes (Other)
  Sender: FDA-Public Use
  Company Number: 2015VER00045

PATIENT
  Age: 29 Year
  Sex: Female

DRUGS (6)
  1. TOVIAZ [Concomitant]
     Active Substance: FESOTERODINE FUMARATE
  2. ABILIFY [Concomitant]
     Active Substance: ARIPIPRAZOLE
  3. MYORISAN [Suspect]
     Active Substance: ISOTRETINOIN
     Indication: ACNE CYSTIC
     Dates: start: 201412, end: 20150122
  4. CENTRUM [Concomitant]
     Active Substance: VITAMINS
  5. TRIMETHOPRIM. [Concomitant]
     Active Substance: TRIMETHOPRIM
  6. EFFEXOR [Concomitant]
     Active Substance: VENLAFAXINE HYDROCHLORIDE

REACTIONS (3)
  - Diarrhoea haemorrhagic [None]
  - Gastroenteritis viral [None]
  - Haemorrhoids [None]

NARRATIVE: CASE EVENT DATE: 201501
